FAERS Safety Report 4530979-9 (Version None)
Quarter: 2004Q4

REPORT INFORMATION
  Report Type: 
  Country: None (occurrence: None)
  Receive Date: 20041202
  Receipt Date: 20041007
  Transmission Date: 20050328
  Serious: No
  Sender: FDA-Public Use
  Company Number: 200420781BWH

PATIENT
  Age: 52 Year
  Sex: Male

DRUGS (5)
  1. LEVITRA [Suspect]
     Indication: ERECTILE DYSFUNCTION
     Dosage: 10 MG, PRN, ORAL
     Route: 048
     Dates: start: 20041005
  2. COZAAR [Concomitant]
  3. PLAVIX [Concomitant]
  4. COREG [Concomitant]
  5. ZOCOR [Concomitant]

REACTIONS (1)
  - PAIN IN EXTREMITY [None]
